FAERS Safety Report 5769670-X (Version None)
Quarter: 2008Q2

REPORT INFORMATION
  Report Type: 
  Country: None (occurrence: None)
  Receive Date: 20080612
  Receipt Date: 20080408
  Transmission Date: 20081010
  Serious: No
  Sender: FDA-Public Use
  Company Number: US-ABBOTT-08P-163-0445973-00

PATIENT
  Sex: Female
  Weight: 57.204 kg

DRUGS (5)
  1. HUMIRA [Suspect]
     Indication: CROHN'S DISEASE
     Route: 058
     Dates: start: 20080407
  2. HUMIRA [Suspect]
     Dates: start: 20070324
  3. MESALAMINE [Concomitant]
     Indication: CROHN'S DISEASE
     Route: 048
  4. METRONIDAZOLE HCL [Concomitant]
     Indication: CROHN'S DISEASE
     Route: 048
  5. MERCAPTOPURINE [Concomitant]
     Indication: CROHN'S DISEASE
     Route: 048

REACTIONS (2)
  - GENITAL HAEMORRHAGE [None]
  - NIGHT SWEATS [None]
